FAERS Safety Report 18762796 (Version 1)
Quarter: 2021Q1

REPORT INFORMATION
  Report Type: Spontaneous
  Country: CH (occurrence: CH)
  Receive Date: 20210120
  Receipt Date: 20210120
  Transmission Date: 20210419
  Serious: Yes (Death, Life-Threatening, Hospitalization, Other)
  Sender: FDA-Public Use
  Company Number: CH-009507513-2101CHE007915

PATIENT
  Sex: Female

DRUGS (17)
  1. JANUVIA [Suspect]
     Active Substance: SITAGLIPTIN PHOSPHATE
     Dosage: 50 MILLIGRAM, DAILY
     Route: 048
     Dates: start: 20201215, end: 20201217
  2. JARDIANCE [Suspect]
     Active Substance: EMPAGLIFLOZIN
     Dosage: 10 MILLIGRAM, DAILY
     Route: 048
     Dates: start: 20201208, end: 20201217
  3. NOVALGIN (DIPYRONE) [Concomitant]
     Active Substance: DIPYRONE
     Dosage: 1000 MILLIGRAM, EVERY 6 HOURS
     Route: 048
  4. METFORMIN [Suspect]
     Active Substance: METFORMIN HYDROCHLORIDE
     Dosage: 1000 MILLIGRAM, EVERY 12 HOURS
     Route: 048
     Dates: start: 20201207, end: 20201217
  5. DIPIPERON [Concomitant]
     Active Substance: PIPAMPERONE
     Dosage: FREQUENCY: EVERY 12 HOURS
     Route: 048
  6. XARELTO [Suspect]
     Active Substance: RIVAROXABAN
     Dosage: 20 MILLIGRAM, DAILY
     Route: 048
     Dates: start: 20201212, end: 20201218
  7. LAXOBERON [Concomitant]
     Active Substance: SODIUM PICOSULFATE
     Dosage: 10 MILLIGRAM, DAILY
     Route: 048
  8. TRAMAL [Concomitant]
     Active Substance: TRAMADOL
     Dosage: 40 GTT DROPS, EVERY 6 HOURS
     Route: 048
  9. PREGABALIN. [Concomitant]
     Active Substance: PREGABALIN
     Dosage: 75 MILLIGRAM, EVERY 12 HOURS
     Route: 048
  10. MOVICOL [Concomitant]
     Active Substance: POLYETHYLENE GLYCOL 3350\POTASSIUM CHLORIDE\SODIUM BICARBONATE\SODIUM CHLORIDE
     Dosage: 1 DOSAGE FORM, EVERY 12 HOURS
     Route: 048
  11. PANTOPRAZOLE [Concomitant]
     Active Substance: PANTOPRAZOLE
     Dosage: 40 MILLIGRAM, DAILY
     Route: 048
  12. QUETIAPINE FUMARATE. [Concomitant]
     Active Substance: QUETIAPINE FUMARATE
     Dosage: 25 MILLIGRAM, EVERY 12 HOURS
     Route: 048
  13. LANTUS [Concomitant]
     Active Substance: INSULIN GLARGINE
     Dosage: AS NECESSARY
     Route: 058
     Dates: start: 20201209, end: 20201213
  14. NAPROXEN. [Suspect]
     Active Substance: NAPROXEN
     Dosage: 500 MILLIGRAM, EVERY 12 HOURS
     Route: 048
     Dates: end: 20201217
  15. DAFALGAN [Suspect]
     Active Substance: ACETAMINOPHEN
     Dosage: 500 MILLIGRAM, EVERY 6 HOURS
     Route: 048
  16. TARGIN [Concomitant]
     Active Substance: NALOXONE HYDROCHLORIDE\OXYCODONE HYDROCHLORIDE
     Dosage: FREQUENCY: EVERY 12 HOURS
     Route: 048
  17. NOVORAPID [Concomitant]
     Active Substance: INSULIN ASPART
     Dosage: AS NECESSARY
     Route: 058

REACTIONS (3)
  - Haematemesis [Recovered/Resolved]
  - Ketoacidosis [Fatal]
  - Melaena [Recovered/Resolved]

NARRATIVE: CASE EVENT DATE: 20201217
